FAERS Safety Report 23805341 (Version 1)
Quarter: 2024Q2

REPORT INFORMATION
  Report Type: Spontaneous
  Country: CN (occurrence: CN)
  Receive Date: 20240502
  Receipt Date: 20240502
  Transmission Date: 20240716
  Serious: Yes (Hospitalization)
  Sender: FDA-Public Use
  Company Number: CN-GLAXOSMITHKLINE-CN2024APC052968

PATIENT

DRUGS (1)
  1. TRELEGY ELLIPTA [Suspect]
     Active Substance: FLUTICASONE FUROATE\UMECLIDINIUM BROMIDE\VILANTEROL TRIFENATATE
     Indication: Chronic obstructive pulmonary disease
     Dosage: 1 DF, QD
     Dates: start: 202404

REACTIONS (4)
  - Hospitalisation [Unknown]
  - Hypoaesthesia oral [Recovered/Resolved]
  - Abdominal pain upper [Recovered/Resolved]
  - Accidental exposure to product packaging [Unknown]

NARRATIVE: CASE EVENT DATE: 20240401
